FAERS Safety Report 15142337 (Version 7)
Quarter: 2019Q1

REPORT INFORMATION
  Report Type: Spontaneous
  Country: FR (occurrence: FR)
  Receive Date: 20180713
  Receipt Date: 20190311
  Transmission Date: 20190417
  Serious: Yes (Life-Threatening, Hospitalization, Other)
  Sender: FDA-Public Use
  Company Number: FR-MYLANLABS-2018M1052492

PATIENT
  Age: 88 Year
  Sex: Female
  Weight: 36 kg

DRUGS (11)
  1. BISOPROLOL [Suspect]
     Active Substance: BISOPROLOL
     Indication: PRODUCT USED FOR UNKNOWN INDICATION
     Dosage: 1.25 MG, QD
     Dates: start: 201709, end: 20171204
  2. LACOSAMIDE. [Interacting]
     Active Substance: LACOSAMIDE
     Indication: NEURODEGENERATIVE DISORDER
     Dosage: LOW DOSE
  3. MACROGOL [Concomitant]
     Active Substance: POLYETHYLENE GLYCOLS
     Indication: PRODUCT USED FOR UNKNOWN INDICATION
     Dosage: 10 G, UNK (ONCE OR TWICE A DAY)
     Dates: start: 201709
  4. ACETAMINOPHEN. [Concomitant]
     Active Substance: ACETAMINOPHEN
     Dosage: 2 MG, UNK (1 MG, IF NEEDED)
     Dates: start: 201709
  5. ACETAMINOPHEN. [Concomitant]
     Active Substance: ACETAMINOPHEN
     Dosage: 1 G, BID IF NEEDED
  6. CYANOCOBALAMIN. [Interacting]
     Active Substance: CYANOCOBALAMIN
     Dosage: 250 ?G, UNK (ON MONDAY AND TUESDAY)
     Dates: start: 201709
  7. LACOSAMIDE. [Interacting]
     Active Substance: LACOSAMIDE
     Indication: EPILEPSY
     Dosage: 50 MG, BID, LOW DOSE
     Dates: start: 20171128, end: 20171204
  8. ENALAPRIL [Concomitant]
     Active Substance: ENALAPRIL
     Indication: HYPERTENSION
     Dosage: 2.5 MG, UNK (OR 5 MG)
     Dates: start: 201709, end: 20171127
  9. IRBESARTAN HYDROCHLOROTHIAZIDE [Concomitant]
     Active Substance: HYDROCHLOROTHIAZIDE\IRBESARTAN
     Indication: BLOOD PRESSURE MEASUREMENT
     Dosage: 150/25 MG PER DAY
     Dates: start: 20171127
  10. PANTOPRAZOLE [Concomitant]
     Active Substance: PANTOPRAZOLE
     Dosage: 20 MG, QD
     Dates: start: 201709
  11. ENALAPRIL [Concomitant]
     Active Substance: ENALAPRIL
     Dosage: 2.5 OR 5 MG ACCORDING TO BLOOD PRESSURE

REACTIONS (5)
  - Sinus bradycardia [Unknown]
  - Hypotension [Unknown]
  - Atrioventricular block complete [Recovering/Resolving]
  - Syncope [Unknown]
  - Drug interaction [Recovering/Resolving]

NARRATIVE: CASE EVENT DATE: 20171128
